FAERS Safety Report 4534689-3 (Version None)
Quarter: 2004Q4

REPORT INFORMATION
  Report Type: 
  Country: None (occurrence: None)
  Receive Date: 20041222
  Receipt Date: 20030929
  Transmission Date: 20050328
  Serious: Yes (Other)
  Sender: FDA-Public Use
  Company Number: US-BRISTOL-MYERS SQUIBB COMPANY-12396719

PATIENT
  Age: 61 Year
  Sex: Female
  Weight: 93 kg

DRUGS (8)
  1. PRAVACHOL [Suspect]
     Indication: DYSLIPIDAEMIA
     Dosage: DOSE INCREASED FROM 20MG TO 40MG AROUND 3/02.
     Route: 048
     Dates: start: 20011101, end: 20030912
  2. TRICOR [Interacting]
     Indication: DYSLIPIDAEMIA
     Route: 048
     Dates: start: 20000101, end: 20030912
  3. GLIPIZIDE [Concomitant]
  4. METFORMIN HCL [Concomitant]
  5. AVANDIA [Concomitant]
  6. LOTENSIN [Concomitant]
  7. ATENOLOL [Concomitant]
  8. ASPIRIN [Concomitant]

REACTIONS (4)
  - BLOOD CREATINE PHOSPHOKINASE INCREASED [None]
  - BLOOD UREA INCREASED [None]
  - DRUG INTERACTION [None]
  - RHABDOMYOLYSIS [None]
